FAERS Safety Report 8423106-9 (Version None)
Quarter: 2012Q2

REPORT INFORMATION
  Report Type: 
  Country: None (occurrence: None)
  Receive Date: 20120608
  Receipt Date: 20120529
  Transmission Date: 20120825
  Serious: Yes (Other)
  Sender: FDA-Public Use
  Company Number: IL-JNJFOC-20120603936

PATIENT

DRUGS (8)
  1. CIPROFLOXACIN [Concomitant]
     Route: 065
  2. RIFAMPIN [Concomitant]
     Route: 065
  3. CLADRIBINE [Suspect]
     Indication: HAIRY CELL LEUKAEMIA
     Dosage: 0.1MG/KG FOR 5 DAYS (2 HR INFUSION) OR 7 DAYS (CONTINUOUS INFUSION)
     Route: 042
  4. ETHAMBUTOL HYDROCHLORIDE [Concomitant]
     Route: 065
  5. PENICILLIN [Suspect]
     Indication: FEBRILE NEUTROPENIA
     Route: 065
  6. ISONIAZID [Concomitant]
     Route: 065
  7. FLUCONAZOLE [Concomitant]
     Route: 065
  8. TRIMETHOPRIM + SULFAMETHOXAZOLE [Concomitant]
     Route: 065

REACTIONS (2)
  - LYMPHOPENIA [None]
  - DERMATITIS [None]
